FAERS Safety Report 10075807 (Version 2)
Quarter: 2014Q3

REPORT INFORMATION
  Report Type: Report from Study
  Country: CA (occurrence: CA)
  Receive Date: 20140414
  Receipt Date: 20140708
  Transmission Date: 20150326
  Serious: Yes (Other)
  Sender: FDA-Public Use
  Company Number: CA-JNJFOC-20140406444

PATIENT
  Age: 19 Year
  Sex: Female
  Weight: 55 kg

DRUGS (1)
  1. REMICADE [Suspect]
     Active Substance: INFLIXIMAB
     Indication: COLITIS ULCERATIVE
     Route: 042
     Dates: start: 201303

REACTIONS (4)
  - Haemoglobin decreased [Unknown]
  - Rash generalised [Unknown]
  - Haemorrhage [Not Recovered/Not Resolved]
  - Polymenorrhoea [Unknown]

NARRATIVE: CASE EVENT DATE: 2014
